FAERS Safety Report 25823180 (Version 1)
Quarter: 2025Q3

REPORT INFORMATION
  Report Type: Spontaneous
  Country: CN (occurrence: CN)
  Receive Date: 20250919
  Receipt Date: 20250919
  Transmission Date: 20251021
  Serious: Yes (Other)
  Sender: RANBAXY
  Company Number: CN-SUN PHARMACEUTICAL INDUSTRIES LTD-2025R1-527496

PATIENT
  Age: 89 Year
  Sex: Male

DRUGS (2)
  1. CAPECITABINE [Suspect]
     Active Substance: CAPECITABINE
     Indication: Nasopharyngeal cancer
     Dosage: 1.5 GRAM, BID
     Route: 048
     Dates: start: 2023
  2. CAPECITABINE [Suspect]
     Active Substance: CAPECITABINE
     Indication: Radiosensitisation therapy

REACTIONS (1)
  - Stomatitis [Recovered/Resolved]
